FAERS Safety Report 7348350-3 (Version None)
Quarter: 2011Q1

REPORT INFORMATION
  Report Type: 
  Country: None (occurrence: None)
  Receive Date: 20110311
  Receipt Date: 20110303
  Transmission Date: 20110831
  Serious: Yes (Other)
  Sender: FDA-Public Use
  Company Number: US-PFIZER INC-2010181209

PATIENT
  Sex: Female

DRUGS (8)
  1. GEODON [Suspect]
     Dosage: 160 MG, QHS WITH FOOD
     Dates: start: 20100708
  2. PRENATAL VITAMINS [Concomitant]
     Dosage: UNK
  3. GEODON [Suspect]
     Dosage: 40 MG, QHS
  4. GEODON [Suspect]
     Indication: PSYCHOTIC DISORDER
     Dosage: 80 MG, AT DINNER WITH A MEAL
     Dates: start: 20091201
  5. STELAZINE [Concomitant]
  6. ARTANE [Concomitant]
  7. PROZAC [Concomitant]
     Indication: DEPRESSION
     Dosage: 40 MG, 1X/DAY
     Route: 048
     Dates: start: 20090806
  8. GEODON [Suspect]
     Indication: SCHIZOPHRENIA
     Dosage: 40 MG, DAILY AT DINNER WITH A MEAL
     Route: 048
     Dates: start: 20091124

REACTIONS (3)
  - DYSTONIA [None]
  - MUSCULAR WEAKNESS [None]
  - DYSKINESIA [None]
